FAERS Safety Report 9337583 (Version 1)
Quarter: 2013Q2

REPORT INFORMATION
  Report Type: Spontaneous
  Country: GB (occurrence: GB)
  Receive Date: 20130607
  Receipt Date: 20130607
  Transmission Date: 20140414
  Serious: Yes (Death, Hospitalization)
  Sender: FDA-Public Use
  Company Number: GB-BAXTER-2013BAX014908

PATIENT
  Age: 64 Year
  Sex: Female
  Weight: 43 kg

DRUGS (10)
  1. DIANEAL PD4 GLUCOSE 1.36% W/V / 13.6 MG/ML [Suspect]
     Indication: RENAL FAILURE CHRONIC
     Dosage: 1ST THERAPY
     Route: 033
     Dates: start: 198712
  2. DIANEAL PD4 GLUCOSE 1.36% W/V / 13.6 MG/ML [Suspect]
     Indication: PERITONEAL DIALYSIS
     Dosage: 2ND THERAPY
     Route: 033
     Dates: start: 199406
  3. DIANEAL PD4 GLUCOSE 1.36% W/V / 13.6 MG/ML [Suspect]
     Dosage: 3RD THERAPY
     Route: 033
     Dates: start: 199909
  4. DIANEAL PD4 GLUCOSE 1.36% W/V / 13.6 MG/ML [Suspect]
     Dosage: 4TH THERAPY
     Route: 033
     Dates: start: 200901
  5. DIANEAL PD4 GLUCOSE 1.36% W/V / 13.6 MG/ML [Suspect]
     Dosage: 5TH THERAPY
     Route: 033
     Dates: start: 201002, end: 20130416
  6. EXTRANEAL (ICODEXTRIN 7.5%) SOLUTION FOR PERITONEAL DIALYSIS [Suspect]
     Indication: RENAL FAILURE CHRONIC
     Dosage: 1ST THERAPY
     Route: 033
     Dates: start: 198712
  7. EXTRANEAL (ICODEXTRIN 7.5%) SOLUTION FOR PERITONEAL DIALYSIS [Suspect]
     Indication: PERITONEAL DIALYSIS
     Dosage: 2ND THERAPY
     Route: 033
     Dates: start: 199406
  8. EXTRANEAL (ICODEXTRIN 7.5%) SOLUTION FOR PERITONEAL DIALYSIS [Suspect]
     Dosage: 3RD THERAPY
     Route: 033
     Dates: start: 199909
  9. EXTRANEAL (ICODEXTRIN 7.5%) SOLUTION FOR PERITONEAL DIALYSIS [Suspect]
     Route: 033
     Dates: start: 200901
  10. EXTRANEAL (ICODEXTRIN 7.5%) SOLUTION FOR PERITONEAL DIALYSIS [Suspect]
     Route: 033
     Dates: start: 201002, end: 20130416

REACTIONS (3)
  - Peritonitis bacterial [Unknown]
  - Asthenia [Unknown]
  - Death [Fatal]
